FAERS Safety Report 24440716 (Version 4)
Quarter: 2025Q1

REPORT INFORMATION
  Report Type: Spontaneous
  Country: PK (occurrence: PK)
  Receive Date: 20241016
  Receipt Date: 20250212
  Transmission Date: 20250408
  Serious: Yes (Other)
  Sender: AMGEN
  Company Number: PK-PFIZER INC-2021423987

PATIENT
  Age: 29 Year
  Sex: Male

DRUGS (19)
  1. ENBREL [Suspect]
     Active Substance: ETANERCEPT
     Indication: Ankylosing spondylitis
     Dosage: 50 MG, WEEKLY
     Route: 042
     Dates: start: 20201229
  2. ENBREL [Suspect]
     Active Substance: ETANERCEPT
     Route: 065
     Dates: start: 20210101
  3. ENBREL [Suspect]
     Active Substance: ETANERCEPT
     Route: 058
  4. ENBREL [Suspect]
     Active Substance: ETANERCEPT
     Dosage: 50 MG, WEEKLY
     Route: 058
  5. ENBREL [Suspect]
     Active Substance: ETANERCEPT
     Route: 058
     Dates: start: 20211021
  6. ENBREL [Suspect]
     Active Substance: ETANERCEPT
     Route: 058
     Dates: start: 20220330
  7. ENBREL [Suspect]
     Active Substance: ETANERCEPT
     Dosage: 50 MG, EVERY FRIDAY
     Route: 058
  8. Sangobion [Concomitant]
     Dosage: 1 DAILY AFTER BREAKFAST
     Route: 065
  9. NEEGE [Concomitant]
     Dosage: 1 DAILY BEFORE BREAKFAST
     Route: 065
  10. SINAXAMOL PLUS [Concomitant]
     Dosage: 1+1 AFTER MEALS
     Route: 065
  11. MUSIDIN [Concomitant]
     Dosage: 2 MG, 1X/DAY IN NIGHT
  12. MUSIDIN [Concomitant]
     Route: 065
  13. BERICA [Concomitant]
     Dosage: IN EVENING AFTER MEALS
     Route: 065
  14. RAZODEX [Concomitant]
     Route: 065
  15. CELBEXX [Concomitant]
     Dosage: 100 MG, 1X/DAY IN MORNING AFTER BREAKFAST
     Route: 065
  16. PANADOL EXTRA [Concomitant]
     Active Substance: ACETAMINOPHEN\CAFFEINE
     Route: 065
  17. Bonmin [Concomitant]
     Dosage: 1 TAB DAILY IN EVENING AFTER MEAL
     Route: 065
  18. TERLAX [Concomitant]
     Dosage: 2MG AT NIGHT
     Route: 065
  19. D plus [Concomitant]
     Dosage: UNK, DAILY (IN EVENING )
     Route: 065

REACTIONS (18)
  - Mitral valve stenosis [Unknown]
  - Multiple sclerosis [Unknown]
  - C-reactive protein increased [Unknown]
  - Red blood cell sedimentation rate increased [Unknown]
  - Rhonchi [Unknown]
  - Malaise [Unknown]
  - Joint range of motion decreased [Unknown]
  - Change of bowel habit [Unknown]
  - Chest pain [Unknown]
  - Left atrial enlargement [Unknown]
  - Mobility decreased [Unknown]
  - Off label use [Unknown]
  - Off label use [Unknown]
  - Alanine aminotransferase increased [Unknown]
  - Drug ineffective [Unknown]
  - Myalgia [Unknown]
  - Dyspepsia [Unknown]
  - Diarrhoea [Unknown]

NARRATIVE: CASE EVENT DATE: 20201229
